FAERS Safety Report 5421422-6 (Version None)
Quarter: 2007Q3

REPORT INFORMATION
  Report Type: 
  Country: None (occurrence: None)
  Receive Date: 20070821
  Receipt Date: 20070817
  Transmission Date: 20080115
  Serious: No
  Sender: FDA-Public Use
  Company Number: US-BOEHRINGER INGELHEIM PHARMACEUTICALS, INC.-2007-BP-17990BP

PATIENT
  Sex: Female
  Weight: 46 kg

DRUGS (2)
  1. COMBIVENT [Suspect]
     Indication: CHRONIC OBSTRUCTIVE PULMONARY DISEASE
     Route: 055
     Dates: start: 20061001
  2. COMBIVENT [Suspect]
     Indication: EMPHYSEMA

REACTIONS (2)
  - DRUG INEFFECTIVE [None]
  - THERAPEUTIC REACTION TIME DECREASED [None]
